FAERS Safety Report 7688736 (Version 11)
Quarter: 2015Q3

REPORT INFORMATION
  Report Type: Report from Study
  Country: BR (occurrence: BR)
  Receive Date: 20101201
  Receipt Date: 20150910
  Transmission Date: 20151125
  Serious: Yes (Hospitalization, Other)
  Sender: FDA-Public Use
  Company Number: BR-ROCHE-744762

PATIENT
  Age: 27 Year
  Sex: Female
  Weight: 58 kg

DRUGS (8)
  1. PRELONE [Concomitant]
     Active Substance: PREDNISOLONE
     Dosage: STARTED A LONG TIME AGO
     Route: 065
  2. OMEPRAZOLE. [Concomitant]
     Active Substance: OMEPRAZOLE
     Dosage: STARTED A LONG TIME AGO
     Route: 065
  3. ACTEMRA [Suspect]
     Active Substance: TOCILIZUMAB
     Indication: RHEUMATOID ARTHRITIS
     Dosage: 200 MG/10 ML 1 VIAL, SHE RECEIVED  04/OCT/2010, 01/FEB/2011, 18/MAY/2011, 01/JUN/2011, 01/JUL/2011,
     Route: 042
  4. ACTEMRA [Suspect]
     Active Substance: TOCILIZUMAB
     Route: 042
     Dates: start: 201009, end: 201401
  5. FOLIC ACID. [Concomitant]
     Active Substance: FOLIC ACID
     Dosage: STARTED A LONG TIME AGO
     Route: 065
  6. FOLIC ACID. [Concomitant]
     Active Substance: FOLIC ACID
     Route: 065
  7. ACTEMRA [Suspect]
     Active Substance: TOCILIZUMAB
     Route: 042
  8. METHOTREXATE [Concomitant]
     Active Substance: METHOTREXATE
     Dosage: STARTED A LONG TIME AGO, FREQUENCY: 6 TABLETS EVERY 8 DAYS
     Route: 065

REACTIONS (14)
  - Peroneal nerve palsy [Not Recovered/Not Resolved]
  - Kidney infection [Recovered/Resolved]
  - Ill-defined disorder [Recovered/Resolved]
  - Peripheral nerve lesion [Not Recovered/Not Resolved]
  - Conjunctivitis [Not Recovered/Not Resolved]
  - Infection [Not Recovered/Not Resolved]
  - Anaemia [Recovered/Resolved]
  - Dizziness [Recovered/Resolved]
  - Nervous system neoplasm [Recovering/Resolving]
  - Nausea [Recovered/Resolved]
  - Disease progression [Unknown]
  - Therapeutic response decreased [Unknown]
  - Urinary tract infection [Recovered/Resolved]
  - Rheumatoid arthritis [Not Recovered/Not Resolved]

NARRATIVE: CASE EVENT DATE: 20100903
